FAERS Safety Report 17955976 (Version 6)
Quarter: 2025Q1

REPORT INFORMATION
  Report Type: Spontaneous
  Country: US (occurrence: US)
  Receive Date: 20200629
  Receipt Date: 20250114
  Transmission Date: 20250409
  Serious: Yes (Hospitalization, Disabling, Other)
  Sender: PFIZER
  Company Number: US-PFIZER INC-2020246632

PATIENT
  Age: 65 Year
  Sex: Female

DRUGS (16)
  1. XELJANZ XR [Suspect]
     Active Substance: TOFACITINIB CITRATE
     Indication: Rheumatoid arthritis
     Dosage: 11 MG, DAILY
     Route: 048
     Dates: start: 20191101
  2. XELJANZ XR [Suspect]
     Active Substance: TOFACITINIB CITRATE
     Dates: start: 20241220
  3. HYDROXYCHLOROQUINE SULFATE [Concomitant]
     Active Substance: HYDROXYCHLOROQUINE SULFATE
  4. CALCIUM\CHOLECALCIFEROL [Concomitant]
     Active Substance: CALCIUM\CHOLECALCIFEROL
  5. ASPIRIN [Concomitant]
     Active Substance: ASPIRIN
  6. GARLIC [Concomitant]
     Active Substance: GARLIC
  7. FISH OIL [Concomitant]
     Active Substance: FISH OIL
  8. CARBAMAZEPINE [Concomitant]
     Active Substance: CARBAMAZEPINE
  9. ATENOLOL [Concomitant]
     Active Substance: ATENOLOL
  10. LUTEIN [Concomitant]
     Active Substance: LUTEIN
  11. AMOXICILLIN [Concomitant]
     Active Substance: AMOXICILLIN
  12. TYLENOL [Concomitant]
     Active Substance: ACETAMINOPHEN
     Indication: Pain
  13. ESCITALOPRAM [Concomitant]
     Active Substance: ESCITALOPRAM OXALATE
  14. LOSARTAN [Concomitant]
     Active Substance: LOSARTAN
  15. BIOFREEZE [CAMPHOR;MENTHOL] [Concomitant]
  16. VITAMIN D NOS [Concomitant]
     Active Substance: CHOLECALCIFEROL\ERGOCALCIFEROL

REACTIONS (12)
  - Hypertension [Unknown]
  - Neuralgia [Unknown]
  - Neck surgery [Unknown]
  - Musculoskeletal stiffness [Not Recovered/Not Resolved]
  - Peripheral nerve operation [Not Recovered/Not Resolved]
  - Gait inability [Not Recovered/Not Resolved]
  - Dysgraphia [Not Recovered/Not Resolved]
  - Hypoaesthesia [Not Recovered/Not Resolved]
  - General physical health deterioration [Not Recovered/Not Resolved]
  - Malaise [Not Recovered/Not Resolved]
  - Fall [Not Recovered/Not Resolved]
  - Injury [Not Recovered/Not Resolved]

NARRATIVE: CASE EVENT DATE: 20230101
